FAERS Safety Report 9411873 (Version 2)
Quarter: 2013Q3

REPORT INFORMATION
  Report Type: Report from Study
  Country: CA (occurrence: CA)
  Receive Date: 20130722
  Receipt Date: 20130819
  Transmission Date: 20140515
  Serious: Yes (Hospitalization, Other)
  Sender: FDA-Public Use
  Company Number: PHHY2012CA103226

PATIENT
  Sex: Male

DRUGS (1)
  1. SANDOSTATIN LAR [Suspect]
     Indication: ANGIODYSPLASIA
     Dosage: 30 MG, ONCE A MONTH
     Route: 030
     Dates: start: 20091217

REACTIONS (3)
  - Anaemia [Unknown]
  - Hernia [Unknown]
  - Lymphadenopathy [Unknown]
